FAERS Safety Report 5423407-2 (Version None)
Quarter: 2007Q3

REPORT INFORMATION
  Report Type: 
  Country: None (occurrence: None)
  Receive Date: 20070823
  Receipt Date: 20070814
  Transmission Date: 20080115
  Serious: Yes (Other)
  Sender: FDA-Public Use
  Company Number: US-JNJFOC-20070802991

PATIENT
  Age: 55 Year
  Sex: Female
  Weight: 58.06 kg

DRUGS (3)
  1. REMICADE [Suspect]
     Indication: RHEUMATOID ARTHRITIS
     Dosage: 3 VIALS
     Route: 042
  2. MTX [Concomitant]
  3. ACTONEL [Concomitant]

REACTIONS (1)
  - DIPLOPIA [None]
